FAERS Safety Report 4311512-3 (Version None)
Quarter: 2004Q1

REPORT INFORMATION
  Report Type: 
  Country: None (occurrence: None)
  Receive Date: 20040303
  Receipt Date: 20040303
  Transmission Date: 20041129
  Serious: Yes (Life-Threatening)
  Sender: FDA-Public Use
  Company Number: None

PATIENT
  Age: 38 Year
  Sex: Female

DRUGS (1)
  1. SUCCINYLCHOLINE [Suspect]
     Dates: start: 20031228, end: 20031228

REACTIONS (3)
  - CARDIAC ARREST [None]
  - HYPERKALAEMIA [None]
  - SINUS TACHYCARDIA [None]
